FAERS Safety Report 18524297 (Version 2)
Quarter: 2021Q1

REPORT INFORMATION
  Report Type: Spontaneous
  Country: US (occurrence: US)
  Receive Date: 20201119
  Receipt Date: 20210128
  Transmission Date: 20210419
  Serious: Yes (Hospitalization)
  Sender: FDA-Public Use
  Company Number: US-TEVA-2020-US-1848981

PATIENT
  Age: 48 Year
  Sex: Male

DRUGS (4)
  1. PALIPERIDONE. [Concomitant]
     Active Substance: PALIPERIDONE
     Indication: SCHIZOPHRENIA
     Route: 030
  2. CLOZAPINE. [Suspect]
     Active Substance: CLOZAPINE
     Indication: SCHIZOPHRENIA
     Dosage: 150MG AT 9:00AM AND 300MG AT 9:00PM
     Route: 048
  3. ARIPIPRAZOLE. [Suspect]
     Active Substance: ARIPIPRAZOLE
     Indication: SCHIZOPHRENIA
     Dosage: THE FIRST DOSE OF ARIPIPRAZOLE WAS 5MG, GIVEN ON NOVEMBER 9, TITRATED UP TO 15MG BY NOVEMBER 15
     Route: 065
  4. CLOZAPINE. [Suspect]
     Active Substance: CLOZAPINE
     Dosage: 150MG AT 9:00AM AND 200MG AT 9:00PM
     Route: 048

REACTIONS (2)
  - Therapeutic product effect incomplete [Unknown]
  - Pleurothotonus [Recovering/Resolving]
